FAERS Safety Report 11218823 (Version 1)
Quarter: 2015Q2

REPORT INFORMATION
  Report Type: Spontaneous
  Country: JP (occurrence: US)
  Receive Date: 20150625
  Receipt Date: 20150625
  Transmission Date: 20150821
  Serious: Yes (Other)
  Sender: FDA-Public Use
  Company Number: JP-SA-2015SA089352

PATIENT
  Age: 55 Year
  Sex: Female
  Weight: 56.24 kg

DRUGS (123)
  1. ACETAMINOPHEN. [Suspect]
     Active Substance: ACETAMINOPHEN
     Route: 065
  2. TOPAMAX [Suspect]
     Active Substance: TOPIRAMATE
     Route: 065
  3. SAVELLA [Suspect]
     Active Substance: MILNACIPRAN HYDROCHLORIDE
     Route: 065
  4. MEDROL [Suspect]
     Active Substance: METHYLPREDNISOLONE
     Route: 065
  5. NEXIUM [Suspect]
     Active Substance: ESOMEPRAZOLE MAGNESIUM
     Route: 065
  6. BEXTRA [Suspect]
     Active Substance: VALDECOXIB
     Route: 065
  7. BACTRIM [Suspect]
     Active Substance: SULFAMETHOXAZOLE\TRIMETHOPRIM
     Route: 065
  8. CYCLOBENZAPRINE [Suspect]
     Active Substance: CYCLOBENZAPRINE
     Route: 065
  9. DOXYCYCLINE HYCLATE. [Suspect]
     Active Substance: DOXYCYCLINE HYCLATE
     Route: 065
  10. ORPHENADRINE [Suspect]
     Active Substance: ORPHENADRINE
     Route: 065
  11. CIMETIDINE [Suspect]
     Active Substance: CIMETIDINE
     Route: 065
  12. DILAUDID [Suspect]
     Active Substance: HYDROMORPHONE HYDROCHLORIDE
     Route: 065
     Dates: start: 20120107
  13. DICLOFENAC [Suspect]
     Active Substance: DICLOFENAC
     Route: 065
  14. MIRALAX [Suspect]
     Active Substance: POLYETHYLENE GLYCOL 3350
     Dosage: FORM-POWDER
     Route: 065
  15. SENNA [Suspect]
     Active Substance: SENNA LEAF\SENNOSIDES\SENNOSIDES A AND B
     Route: 065
  16. OLANZAPINE. [Suspect]
     Active Substance: OLANZAPINE
     Route: 065
  17. VICODIN [Suspect]
     Active Substance: ACETAMINOPHEN\HYDROCODONE BITARTRATE
     Route: 065
  18. LODINE [Suspect]
     Active Substance: ETODOLAC
     Route: 065
  19. NUCYNTA [Suspect]
     Active Substance: TAPENTADOL HYDROCHLORIDE
     Route: 065
  20. PIROXICAM. [Suspect]
     Active Substance: PIROXICAM
     Route: 065
  21. LIBRAX [Suspect]
     Active Substance: CHLORDIAZEPOXIDE HYDROCHLORIDE\CLIDINIUM BROMIDE
     Route: 065
  22. XANAX [Suspect]
     Active Substance: ALPRAZOLAM
     Route: 065
  23. HYDROMORPHONE [Suspect]
     Active Substance: HYDROMORPHONE
     Route: 065
  24. NAPROXEN. [Suspect]
     Active Substance: NAPROXEN
     Route: 065
  25. FERROUS SULFATE [Suspect]
     Active Substance: FERROUS SULFATE\FERROUS SULFATE, DRIED
     Route: 065
  26. AMOXICILLIN. [Suspect]
     Active Substance: AMOXICILLIN
     Route: 065
  27. SULFAMETHOXAZOLE [Suspect]
     Active Substance: SULFAMETHOXAZOLE
     Route: 065
  28. QUETIAPINE FUMARATE. [Suspect]
     Active Substance: QUETIAPINE FUMARATE
     Route: 065
  29. TRAZODONE [Suspect]
     Active Substance: TRAZODONE HYDROCHLORIDE
     Route: 065
  30. AMBIEN [Suspect]
     Active Substance: ZOLPIDEM TARTRATE
     Route: 065
  31. DILAUDID [Suspect]
     Active Substance: HYDROMORPHONE HYDROCHLORIDE
     Route: 065
     Dates: start: 20111028
  32. TRAMADOL [Suspect]
     Active Substance: TRAMADOL
     Route: 065
  33. DOCUSATE [Suspect]
     Active Substance: DOCUSATE
     Route: 065
  34. TOPIRAMATE. [Suspect]
     Active Substance: TOPIRAMATE
     Route: 065
  35. FLEXERIL [Suspect]
     Active Substance: CYCLOBENZAPRINE HYDROCHLORIDE
     Route: 065
     Dates: start: 20120306
  36. CYMBALTA [Suspect]
     Active Substance: DULOXETINE HYDROCHLORIDE
     Route: 065
  37. ZOLOFT [Suspect]
     Active Substance: SERTRALINE HYDROCHLORIDE
     Route: 065
     Dates: start: 2006
  38. PERCOCET [Suspect]
     Active Substance: ACETAMINOPHEN\OXYCODONE HYDROCHLORIDE
     Route: 065
  39. TOPROL XL [Suspect]
     Active Substance: METOPROLOL SUCCINATE
     Route: 065
  40. ONDANSETRON [Suspect]
     Active Substance: ONDANSETRON
     Route: 065
  41. MILK OF MAGNESIA [Suspect]
     Active Substance: MAGNESIUM HYDROXIDE
     Route: 065
  42. FLUPHENAZINE [Suspect]
     Active Substance: FLUPHENAZINE
     Route: 065
  43. ALPRAZOLAM. [Suspect]
     Active Substance: ALPRAZOLAM
     Route: 065
  44. METHYLPREDNISOLONE. [Suspect]
     Active Substance: METHYLPREDNISOLONE
     Route: 065
  45. MEXILETINE [Suspect]
     Active Substance: MEXILETINE
     Route: 065
  46. BACLOFEN. [Suspect]
     Active Substance: BACLOFEN
     Route: 037
     Dates: start: 20120107, end: 20121018
  47. LORAZEPAM. [Suspect]
     Active Substance: LORAZEPAM
     Route: 065
  48. HYDROXYZINE [Suspect]
     Active Substance: HYDROXYZINE\HYDROXYZINE HYDROCHLORIDE
     Route: 065
  49. PANTHENOL/RETINOL/THIAMINE HYDROCHLORIDE/ASCORBIC ACID/ERGOCALCIFEROL/FOLIC ACID/RIBOFLAVIN/NICOTINA [Suspect]
     Active Substance: ASCORBIC ACID\ERGOCALCIFEROL\FOLIC ACID\NIACINAMIDE\PANTHENOL\RETINOL\RIBOFLAVIN\THIAMINE HYDROCHLORIDE
     Route: 065
  50. NORTRIPTYLINE [Suspect]
     Active Substance: NORTRIPTYLINE
     Route: 065
  51. PRISTIQ EXTENDED RELEASE [Suspect]
     Active Substance: DESVENLAFAXINE SUCCINATE
     Route: 065
  52. HYOSCYAMINE [Suspect]
     Active Substance: HYOSCYAMINE
     Route: 065
  53. LAMICTAL [Suspect]
     Active Substance: LAMOTRIGINE
     Route: 065
  54. PLAQUENIL [Suspect]
     Active Substance: HYDROXYCHLOROQUINE SULFATE
     Route: 065
  55. CLONAZEPAM. [Suspect]
     Active Substance: CLONAZEPAM
     Route: 065
     Dates: start: 20110930
  56. ROXICODONE [Suspect]
     Active Substance: OXYCODONE HYDROCHLORIDE
     Route: 065
  57. PHENERGAN [Suspect]
     Active Substance: PROMETHAZINE HYDROCHLORIDE
     Route: 065
  58. IBUPROFEN. [Suspect]
     Active Substance: IBUPROFEN
     Route: 065
  59. CEPHALEXIN. [Suspect]
     Active Substance: CEPHALEXIN
     Route: 065
  60. VALACICLOVIR [Suspect]
     Active Substance: VALACYCLOVIR HYDROCHLORIDE
     Route: 065
  61. PREDNISONE. [Suspect]
     Active Substance: PREDNISONE
     Route: 065
  62. DULOXETINE [Suspect]
     Active Substance: DULOXETINE
     Route: 065
  63. ZANAFLEX [Suspect]
     Active Substance: TIZANIDINE HYDROCHLORIDE
     Route: 065
     Dates: start: 200502
  64. CELEBREX [Suspect]
     Active Substance: CELECOXIB
     Route: 065
  65. CELEXA [Suspect]
     Active Substance: CITALOPRAM HYDROBROMIDE
     Route: 065
  66. SKELAXIN [Suspect]
     Active Substance: METAXALONE
     Route: 065
  67. ASPIRIN. [Suspect]
     Active Substance: ASPIRIN
     Route: 065
  68. TYLENOL [Suspect]
     Active Substance: ACETAMINOPHEN
     Route: 065
  69. ENOXAPARIN [Suspect]
     Active Substance: ENOXAPARIN
     Route: 065
  70. OXYCODONE [Suspect]
     Active Substance: OXYCODONE
     Route: 065
  71. ALENDRONATE SODIUM. [Suspect]
     Active Substance: ALENDRONATE SODIUM
     Route: 065
  72. BACLOFEN. [Suspect]
     Active Substance: BACLOFEN
     Route: 048
     Dates: start: 20111011
  73. VALIUM [Suspect]
     Active Substance: DIAZEPAM
     Route: 065
     Dates: start: 20111212
  74. LIDOCAINE. [Suspect]
     Active Substance: LIDOCAINE
     Dosage: FORM-PATCH
     Route: 061
  75. TIZANIDINE (TIZANIDINE) [Suspect]
     Active Substance: TIZANIDINE
     Route: 065
  76. ATIVAN [Suspect]
     Active Substance: LORAZEPAM
     Route: 065
  77. GABAPENTIN. [Suspect]
     Active Substance: GABAPENTIN
     Route: 065
  78. METHOCARBAMOL. [Suspect]
     Active Substance: METHOCARBAMOL
     Route: 065
  79. MAGNESIUM CITRATE. [Suspect]
     Active Substance: MAGNESIUM CITRATE
     Route: 048
  80. MACROBID [Suspect]
     Active Substance: NITROFURANTOIN\NITROFURANTOIN MONOHYDRATE
     Route: 065
  81. HYDROCODONE W/ACETAMINOPHEN [Suspect]
     Active Substance: ACETAMINOPHEN\HYDROCODONE BITARTRATE
     Route: 065
  82. SERTRALINE [Suspect]
     Active Substance: SERTRALINE HYDROCHLORIDE
     Route: 065
  83. METAXALONE. [Suspect]
     Active Substance: METAXALONE
     Route: 065
  84. NITROSTAT [Suspect]
     Active Substance: NITROGLYCERIN
     Route: 065
  85. BUPIVACAINE [Suspect]
     Active Substance: BUPIVACAINE
     Route: 037
     Dates: start: 20130226
  86. ZANTAC [Suspect]
     Active Substance: RANITIDINE HYDROCHLORIDE
     Route: 065
  87. MELATONIN [Suspect]
     Active Substance: MELATONIN
     Route: 065
  88. HEPARIN [Suspect]
     Active Substance: HEPARIN SODIUM
     Route: 065
  89. MELOXICAM. [Suspect]
     Active Substance: MELOXICAM
     Route: 065
  90. KETOROLAC [Suspect]
     Active Substance: KETOROLAC\KETOROLAC TROMETHAMINE
     Route: 065
  91. EFFEXOR [Suspect]
     Active Substance: VENLAFAXINE HYDROCHLORIDE
     Route: 065
     Dates: start: 20110930
  92. ACTONEL [Suspect]
     Active Substance: RISEDRONATE SODIUM
     Route: 065
  93. ZOLOFT [Suspect]
     Active Substance: SERTRALINE HYDROCHLORIDE
     Route: 065
     Dates: start: 200512
  94. MOBIC [Suspect]
     Active Substance: MELOXICAM
     Route: 065
  95. TORADOL [Suspect]
     Active Substance: KETOROLAC TROMETHAMINE
     Route: 065
  96. ABILIFY [Suspect]
     Active Substance: ARIPIPRAZOLE
     Route: 065
  97. BISACODYL. [Suspect]
     Active Substance: BISACODYL
     Route: 048
  98. DIVALPROEX SODIUM. [Suspect]
     Active Substance: DIVALPROEX SODIUM
     Route: 065
  99. PROLIXIN [Suspect]
     Active Substance: FLUPHENAZINE HYDROCHLORIDE
     Route: 065
  100. ARTHROTEC [Suspect]
     Active Substance: DICLOFENAC SODIUM\MISOPROSTOL
     Route: 065
  101. LEXAPRO [Suspect]
     Active Substance: ESCITALOPRAM OXALATE
     Route: 065
  102. CIPROFLOXACIN HYDROCHLORIDE. [Suspect]
     Active Substance: CIPROFLOXACIN HYDROCHLORIDE
     Route: 065
  103. NUVIGIL [Suspect]
     Active Substance: ARMODAFINIL
     Route: 065
     Dates: start: 20110930
  104. LIDODERM [Suspect]
     Active Substance: LIDOCAINE
     Route: 065
  105. CARBAMAZEPINE. [Suspect]
     Active Substance: CARBAMAZEPINE
     Route: 048
  106. LEVAQUIN [Suspect]
     Active Substance: LEVOFLOXACIN
     Route: 065
  107. MOBIC [Suspect]
     Active Substance: MELOXICAM
     Route: 065
  108. ZANAFLEX [Suspect]
     Active Substance: TIZANIDINE HYDROCHLORIDE
     Route: 065
  109. AMITRIPTYLINE [Suspect]
     Active Substance: AMITRIPTYLINE
     Route: 065
  110. LITHIUM. [Suspect]
     Active Substance: LITHIUM
     Route: 065
  111. METHOCARBAMOL. [Suspect]
     Active Substance: METHOCARBAMOL
     Route: 065
  112. RANITIDINE [Suspect]
     Active Substance: RANITIDINE\RANITIDINE HYDROCHLORIDE
     Route: 065
  113. VITAMIN D3 [Suspect]
     Active Substance: CHOLECALCIFEROL
     Route: 065
  114. DIAZEPAM. [Suspect]
     Active Substance: DIAZEPAM
     Route: 065
  115. SEROQUEL [Suspect]
     Active Substance: QUETIAPINE FUMARATE
     Route: 065
  116. ULTRACET [Suspect]
     Active Substance: ACETAMINOPHEN\TRAMADOL HYDROCHLORIDE
     Route: 065
  117. DEPAKOTE [Suspect]
     Active Substance: DIVALPROEX SODIUM
     Route: 065
  118. TRANYLCYPROMINE [Suspect]
     Active Substance: TRANYLCYPROMINE
     Route: 065
  119. PANTOPRAZOLE [Suspect]
     Active Substance: PANTOPRAZOLE SODIUM
     Route: 065
  120. BIAXIN [Suspect]
     Active Substance: CLARITHROMYCIN
     Route: 065
  121. PROMETHAZINE [Suspect]
     Active Substance: PROMETHAZINE\PROMETHAZINE HYDROCHLORIDE
     Route: 065
  122. NAMENDA [Suspect]
     Active Substance: MEMANTINE HYDROCHLORIDE
     Route: 065
  123. RISPERIDONE. [Suspect]
     Active Substance: RISPERIDONE
     Route: 065

REACTIONS (19)
  - Insomnia [Unknown]
  - Depression [Unknown]
  - Psychogenic pain disorder [Unknown]
  - Anxiety disorder [Unknown]
  - Atrophy [Unknown]
  - Joint effusion [Unknown]
  - Myofascial pain syndrome [Unknown]
  - Bursitis [Unknown]
  - Muscle spasms [Unknown]
  - Asthenia [Unknown]
  - Arthralgia [Unknown]
  - No therapeutic response [Unknown]
  - Contusion [Unknown]
  - Social avoidant behaviour [Unknown]
  - Osteoporosis [Unknown]
  - Fall [Unknown]
  - Substance-induced psychotic disorder [Unknown]
  - Panic reaction [Unknown]
  - Back pain [Unknown]

NARRATIVE: CASE EVENT DATE: 200702
